FAERS Safety Report 26034352 (Version 1)
Quarter: 2025Q4

REPORT INFORMATION
  Report Type: Spontaneous
  Country: US (occurrence: None)
  Receive Date: 20251112
  Receipt Date: 20251112
  Transmission Date: 20260118
  Serious: Yes (Hospitalization)
  Sender: FDA-CTU
  Company Number: None

PATIENT
  Age: 45 Year
  Sex: Male
  Weight: 62.7 kg

DRUGS (5)
  1. FLUOROURACIL [Suspect]
     Active Substance: FLUOROURACIL
     Dates: end: 20251102
  2. LEUCOVORIN CALCIUM [Suspect]
     Active Substance: LEUCOVORIN CALCIUM
     Dates: end: 20251031
  3. NIVOLUMAB [Suspect]
     Active Substance: NIVOLUMAB
     Dates: end: 20251031
  4. ELOXATIN [Suspect]
     Active Substance: OXALIPLATIN
     Dates: end: 20251031
  5. ZOFRAN [Concomitant]
     Active Substance: ONDANSETRON HYDROCHLORIDE

REACTIONS (6)
  - Trismus [None]
  - Muscle spasms [None]
  - Muscle tightness [None]
  - Temporomandibular pain and dysfunction syndrome [None]
  - Tetanus [None]
  - Dystonia [None]

NARRATIVE: CASE EVENT DATE: 20251108
